FAERS Safety Report 4870312-6 (Version None)
Quarter: 2005Q4

REPORT INFORMATION
  Report Type: 
  Country: None (occurrence: None)
  Receive Date: 20051228
  Receipt Date: 20051212
  Transmission Date: 20060501
  Serious: Yes (Other)
  Sender: FDA-Public Use
  Company Number: GBS051018721

PATIENT
  Age: 8 Year
  Sex: Male
  Weight: 24 kg

DRUGS (3)
  1. STRATTERA [Suspect]
     Indication: ATTENTION DEFICIT/HYPERACTIVITY DISORDER
     Dosage: 25 MG, UNKNOWN, ORAL
     Route: 048
     Dates: start: 20050801
  2. CONCERTA [Concomitant]
  3. MELATONIN (MELATONIN) [Concomitant]

REACTIONS (1)
  - SUICIDAL IDEATION [None]
